FAERS Safety Report 8137455-5 (Version None)
Quarter: 2012Q1

REPORT INFORMATION
  Report Type: 
  Country: None (occurrence: None)
  Receive Date: 20120213
  Receipt Date: 20120203
  Transmission Date: 20120608
  Serious: Yes (Hospitalization)
  Sender: FDA-Public Use
  Company Number: DSA_55037_2012

PATIENT
  Sex: Male

DRUGS (1)
  1. XENAZINE [Suspect]
     Indication: HUNTINGTON'S DISEASE
     Dosage: (87.5 MG, 37.5MG IN THE MORNING, 25MG AT NOON, AND 25MG IN THE EVENING ORAL), (DF ORAL)
     Route: 048
     Dates: start: 20090401

REACTIONS (1)
  - UNEVALUABLE EVENT [None]
